FAERS Safety Report 10096716 (Version 1)
Quarter: 2014Q2

REPORT INFORMATION
  Report Type: Spontaneous
  Country: DE (occurrence: SE)
  Receive Date: 20140422
  Receipt Date: 20140422
  Transmission Date: 20141212
  Serious: Yes (Hospitalization)
  Sender: FDA-Public Use
  Company Number: SE-FRI-1000066752

PATIENT
  Age: 81 Year
  Sex: Female

DRUGS (1)
  1. MEMANTINE [Suspect]

REACTIONS (1)
  - Hyponatraemia [Not Recovered/Not Resolved]
